FAERS Safety Report 6877085-6 (Version None)
Quarter: 2010Q3

REPORT INFORMATION
  Report Type: 
  Country: None (occurrence: None)
  Receive Date: 20100727
  Receipt Date: 20100727
  Transmission Date: 20110219
  Serious: No
  Sender: FDA-Public Use
  Company Number: None

PATIENT
  Age: 58 Year
  Sex: Female
  Weight: 78.4723 kg

DRUGS (2)
  1. LEVAQUIN [Suspect]
     Indication: DIVERTICULITIS
     Dosage: 750 MG ONCE DAILY PO
     Route: 048
     Dates: start: 20100615, end: 20100618
  2. LEVAQUIN [Suspect]
     Indication: DIVERTICULITIS
     Dosage: IV DRIP
     Route: 041
     Dates: start: 20100719, end: 20100720

REACTIONS (3)
  - ARTHRALGIA [None]
  - JOINT SWELLING [None]
  - PAIN IN EXTREMITY [None]
